FAERS Safety Report 4809252-7 (Version None)
Quarter: 2005Q4

REPORT INFORMATION
  Report Type: 
  Country: None (occurrence: None)
  Receive Date: 20051021
  Receipt Date: 20030606
  Transmission Date: 20060501
  Serious: Yes (Other)
  Sender: FDA-Public Use
  Company Number: GBS030613230

PATIENT
  Age: 33 Year
  Sex: Male

DRUGS (1)
  1. OLANZAPINE [Suspect]
     Indication: BIPOLAR DISORDER
     Dosage: 20 MG/UNKNOWN
     Dates: start: 20030315

REACTIONS (6)
  - ABDOMINAL PAIN [None]
  - DOCUMENTED HYPERSENSITIVITY TO ADMINISTERED DRUG [None]
  - FACE OEDEMA [None]
  - FULL BLOOD COUNT DECREASED [None]
  - GENERALISED OEDEMA [None]
  - RASH [None]
